FAERS Safety Report 17461326 (Version 1)
Quarter: 2020Q1

REPORT INFORMATION
  Report Type: Report from Study
  Country: IN (occurrence: IN)
  Receive Date: 20200226
  Receipt Date: 20200226
  Transmission Date: 20200409
  Serious: Yes (Death, Other)
  Sender: FDA-Public Use
  Company Number: IN-ROCHE-2552962

PATIENT
  Sex: Male

DRUGS (3)
  1. ATEZOLIZUMAB. [Suspect]
     Active Substance: ATEZOLIZUMAB
     Indication: ADENOCARCINOMA
     Dosage: TOTAL 4 CYCLES
     Route: 065
  2. PEMBROLIZUMAB. [Suspect]
     Active Substance: PEMBROLIZUMAB
     Indication: ADENOCARCINOMA
     Dosage: TOTAL 4 CYCLES
     Route: 065
  3. NIVOLUMAB [Suspect]
     Active Substance: NIVOLUMAB
     Indication: ADENOCARCINOMA
     Dosage: TOTAL 4 CYCLES
     Route: 065

REACTIONS (7)
  - Addison^s disease [Unknown]
  - Encephalitis [Fatal]
  - Myocardial infarction [Fatal]
  - Skin toxicity [Unknown]
  - Pneumonitis [Unknown]
  - Haematotoxicity [Unknown]
  - Diarrhoea [Unknown]
